FAERS Safety Report 4788455-4 (Version None)
Quarter: 2005Q4

REPORT INFORMATION
  Report Type: 
  Country: None (occurrence: None)
  Receive Date: 20051005
  Receipt Date: 20050913
  Transmission Date: 20060501
  Serious: Yes (Death, Hospitalization)
  Sender: FDA-Public Use
  Company Number: PHHO2005CL14507

PATIENT
  Sex: Female

DRUGS (3)
  1. GLEEVEC [Suspect]
     Dosage: 500 MG, UNK
     Route: 048
  2. MERCAPTOPURINE [Concomitant]
  3. HYDROXYUREA [Concomitant]

REACTIONS (2)
  - ESCHERICHIA SEPSIS [None]
  - NEUTROPENIA [None]
